FAERS Safety Report 16527191 (Version 1)
Quarter: 2019Q3

REPORT INFORMATION
  Report Type: Spontaneous
  Country: IT (occurrence: IT)
  Receive Date: 20190703
  Receipt Date: 20190703
  Transmission Date: 20191004
  Serious: Yes (Other)
  Sender: FDA-Public Use
  Company Number: IT-MYLANLABS-2019M1024527

PATIENT
  Age: 67 Year
  Sex: Male

DRUGS (2)
  1. ATORVASTATIN [Suspect]
     Active Substance: ATORVASTATIN
     Indication: INFARCTION
     Dosage: 10 MILLIGRAM, QD
     Route: 048
     Dates: start: 20120101, end: 20120301
  2. EZETIMIBE. [Suspect]
     Active Substance: EZETIMIBE
     Indication: INFARCTION
     Dosage: 10 MILLIGRAM, QD
     Route: 048
     Dates: start: 20120101, end: 20120301

REACTIONS (2)
  - Myositis [Recovering/Resolving]
  - Muscle spasticity [Recovering/Resolving]

NARRATIVE: CASE EVENT DATE: 20120101
